FAERS Safety Report 8637327 (Version 2)
Quarter: 2012Q4

REPORT INFORMATION
  Report Type: 
  Country: AR (occurrence: AR)
  Receive Date: 20120627
  Receipt Date: 20120907
  Transmission Date: 20130627
  Serious: Yes (Other)
  Sender: FDA-Public Use
  Company Number: AR-AMGEN-ARGSP2012038112

PATIENT
  Age: 50 Year
  Sex: Female
  Weight: 54 kg

DRUGS (2)
  1. ENBREL [Suspect]
     Indication: PSORIASIS
     Dosage: 50 mg, weekly
     Dates: start: 201110, end: 20120503
  2. ENBREL [Suspect]
     Dosage: 100 mg, weekly
     Dates: start: 20110715, end: 201110

REACTIONS (1)
  - Breast cancer [Not Recovered/Not Resolved]
